FAERS Safety Report 25452206 (Version 1)
Quarter: 2025Q2

REPORT INFORMATION
  Report Type: Spontaneous
  Country: DE (occurrence: DE)
  Receive Date: 20250618
  Receipt Date: 20250618
  Transmission Date: 20250717
  Serious: Yes (Other)
  Sender: MYLAN
  Company Number: DE-002147023-NVSC2025DE085378

PATIENT
  Sex: Male

DRUGS (16)
  1. CANDESARTAN [Suspect]
     Active Substance: CANDESARTAN
     Indication: Blood pressure increased
  2. CANDESARTAN [Suspect]
     Active Substance: CANDESARTAN
     Route: 065
  3. CANDESARTAN [Suspect]
     Active Substance: CANDESARTAN
     Route: 065
  4. CANDESARTAN [Suspect]
     Active Substance: CANDESARTAN
  5. NEVANAC [Suspect]
     Active Substance: NEPAFENAC
     Indication: Prophylaxis
  6. NEVANAC [Suspect]
     Active Substance: NEPAFENAC
     Indication: Macular oedema
  7. NEVANAC [Suspect]
     Active Substance: NEPAFENAC
     Route: 047
  8. NEVANAC [Suspect]
     Active Substance: NEPAFENAC
     Route: 047
  9. NEVANAC [Suspect]
     Active Substance: NEPAFENAC
  10. NEVANAC [Suspect]
     Active Substance: NEPAFENAC
  11. NEVANAC [Suspect]
     Active Substance: NEPAFENAC
     Route: 047
  12. NEVANAC [Suspect]
     Active Substance: NEPAFENAC
     Route: 047
  13. UNSPECIFIED INGREDIENT [Concomitant]
     Active Substance: UNSPECIFIED INGREDIENT
     Indication: Product used for unknown indication
  14. UNSPECIFIED INGREDIENT [Concomitant]
     Active Substance: UNSPECIFIED INGREDIENT
     Route: 065
  15. UNSPECIFIED INGREDIENT [Concomitant]
     Active Substance: UNSPECIFIED INGREDIENT
     Route: 065
  16. UNSPECIFIED INGREDIENT [Concomitant]
     Active Substance: UNSPECIFIED INGREDIENT

REACTIONS (4)
  - Macular oedema [Not Recovered/Not Resolved]
  - Retinal vein occlusion [Unknown]
  - Drug ineffective for unapproved indication [Unknown]
  - Off label use [Unknown]

NARRATIVE: CASE EVENT DATE: 20250101
